FAERS Safety Report 6850448-0 (Version None)
Quarter: 2010Q3

REPORT INFORMATION
  Report Type: 
  Country: None (occurrence: None)
  Receive Date: 20100716
  Receipt Date: 20071206
  Transmission Date: 20110219
  Serious: Yes (Other)
  Sender: FDA-Public Use
  Company Number: US-PFIZER INC-2007087425

PATIENT
  Sex: Female
  Weight: 70.5 kg

DRUGS (3)
  1. CHANTIX [Suspect]
     Indication: SMOKING CESSATION THERAPY
     Route: 048
     Dates: start: 20060801, end: 20071005
  2. MONTELUKAST SODIUM [Concomitant]
     Indication: HYPERSENSITIVITY
  3. MONTELUKAST SODIUM [Concomitant]
     Indication: ASTHMA

REACTIONS (5)
  - ABDOMINAL PAIN [None]
  - ANGER [None]
  - ANXIETY [None]
  - DEPRESSION [None]
  - NAUSEA [None]
